FAERS Safety Report 7516278-1 (Version None)
Quarter: 2011Q2

REPORT INFORMATION
  Report Type: 
  Country: None (occurrence: None)
  Receive Date: 20110601
  Receipt Date: 20110518
  Transmission Date: 20111010
  Serious: Yes (Hospitalization, Other)
  Sender: FDA-Public Use
  Company Number: PHHY2010JP61642

PATIENT
  Sex: Female

DRUGS (11)
  1. WARFARIN SODIUM [Suspect]
     Indication: PROPHYLAXIS
     Dosage: 2.5 MG, UNK
     Route: 048
     Dates: start: 20100506, end: 20100519
  2. MYONAL [Concomitant]
     Dosage: 150 UG, UNK
     Route: 048
     Dates: start: 20100506, end: 20100519
  3. AFINITOR [Suspect]
     Indication: METASTATIC RENAL CELL CARCINOMA
     Dosage: 10 MG, QD
     Route: 048
     Dates: start: 20100506, end: 20100519
  4. PROCHLORPERAZINE [Concomitant]
     Indication: METASTATIC RENAL CELL CARCINOMA
     Dosage: 15 MG, UNK
     Route: 048
     Dates: start: 20100506
  5. FERROUS CITRATE [Concomitant]
     Dosage: UNK
     Route: 048
     Dates: start: 20100506, end: 20100519
  6. MAGNESIUM SULFATE [Concomitant]
     Indication: METASTATIC RENAL CELL CARCINOMA
     Dosage: 750 MG, UNK
     Route: 048
     Dates: start: 20100506
  7. OXINORM [Concomitant]
     Indication: METASTATIC RENAL CELL CARCINOMA
     Route: 048
  8. CARVEDILOL [Concomitant]
     Dosage: 2.5 MG, UNK
     Route: 048
     Dates: start: 20100506, end: 20100519
  9. NEXAVAR [Concomitant]
     Dosage: 400 MG, UNK
     Route: 048
     Dates: start: 20100107, end: 20100204
  10. ETODOLAC [Concomitant]
     Indication: METASTATIC RENAL CELL CARCINOMA
     Dosage: 400 MG, UNK
     Route: 048
     Dates: start: 20100506
  11. OXYCONTIN [Concomitant]
     Indication: METASTATIC RENAL CELL CARCINOMA
     Dosage: 10 MG, UNK
     Route: 048
     Dates: start: 20100506

REACTIONS (7)
  - HAEMOGLOBIN DECREASED [None]
  - PROTHROMBIN TIME PROLONGED [None]
  - INFECTION [None]
  - C-REACTIVE PROTEIN INCREASED [None]
  - PYREXIA [None]
  - DECREASED APPETITE [None]
  - TUMOUR ASSOCIATED FEVER [None]
